FAERS Safety Report 18122814 (Version 1)
Quarter: 2020Q3

REPORT INFORMATION
  Report Type: Spontaneous
  Country: US (occurrence: US)
  Receive Date: 20200806
  Receipt Date: 20200806
  Transmission Date: 20201103
  Serious: No
  Sender: FDA-Public Use
  Company Number: None

PATIENT
  Age: 61 Year
  Sex: Female
  Weight: 114.3 kg

DRUGS (1)
  1. MULTIHANCE [Suspect]
     Active Substance: GADOBENATE DIMEGLUMINE
     Indication: X-RAY WITH CONTRAST
     Dosage: ?          OTHER FREQUENCY:ONCE;?
     Route: 040

REACTIONS (4)
  - Erythema [None]
  - Contrast media allergy [None]
  - Chest discomfort [None]
  - Injection related reaction [None]

NARRATIVE: CASE EVENT DATE: 20200806
